FAERS Safety Report 6876706-1 (Version None)
Quarter: 2010Q3

REPORT INFORMATION
  Report Type: 
  Country: None (occurrence: None)
  Receive Date: 20100727
  Receipt Date: 20100721
  Transmission Date: 20110219
  Serious: Yes (Hospitalization)
  Sender: FDA-Public Use
  Company Number: DE-ROCHE-716668

PATIENT
  Sex: Female
  Weight: 64 kg

DRUGS (3)
  1. BEVACIZUMAB [Suspect]
     Indication: BREAST CANCER
     Dosage: ROUTE: IV PORT, FORM: PER PROTOCOL LAST DOSE PRIOR SAE: 12 JUL 2010
     Route: 042
     Dates: start: 20100531
  2. EPIRUBICIN [Suspect]
     Indication: BREAST CANCER
     Dosage: ROUTE: IV PORT LAST DOSE PRIOR TO EVENT: 12 JUL 2010
     Route: 042
     Dates: start: 20100601
  3. CYCLOPHOSPHAMIDE [Suspect]
     Indication: BREAST CANCER
     Dosage: ROUTE: IV PORT LAST DOSE PRIOR SAE: 12 JUL 201
     Route: 042
     Dates: start: 20100601

REACTIONS (1)
  - CHEST DISCOMFORT [None]
